FAERS Safety Report 6720119-X (Version None)
Quarter: 2010Q2

REPORT INFORMATION
  Report Type: 
  Country: None (occurrence: None)
  Receive Date: 20100511
  Receipt Date: 20100430
  Transmission Date: 20101027
  Serious: Yes (Other)
  Sender: FDA-Public Use
  Company Number: FI-JNJFOC-20100500420

PATIENT

DRUGS (9)
  1. REMICADE [Suspect]
     Indication: CROHN'S DISEASE
     Route: 042
  2. REMICADE [Suspect]
     Route: 042
  3. REMICADE [Suspect]
     Route: 042
  4. REMICADE [Suspect]
     Route: 042
  5. REMICADE [Suspect]
     Route: 042
  6. ZYRTEC [Concomitant]
     Indication: PREMEDICATION
     Route: 048
  7. ZYRTEC [Concomitant]
     Route: 048
  8. SOLU-CORTEF [Concomitant]
     Indication: PREMEDICATION
     Route: 042
  9. SOLU-CORTEF [Concomitant]
     Route: 042

REACTIONS (8)
  - COUGH [None]
  - DYSPNOEA [None]
  - ERYTHEMA [None]
  - EYELID OEDEMA [None]
  - INFUSION RELATED REACTION [None]
  - THERAPEUTIC RESPONSE DECREASED [None]
  - URTICARIA [None]
  - VOMITING [None]
